FAERS Safety Report 5497344-1 (Version None)
Quarter: 2007Q4

REPORT INFORMATION
  Report Type: 
  Country: None (occurrence: None)
  Receive Date: 20071025
  Receipt Date: 20061005
  Transmission Date: 20080405
  Serious: No
  Sender: FDA-Public Use
  Company Number: A0622632A

PATIENT
  Age: 53 Year
  Sex: Female

DRUGS (9)
  1. ADVAIR DISKUS 100/50 [Suspect]
     Indication: DRUG USE FOR UNKNOWN INDICATION
     Dosage: 1PUFF TWICE PER DAY
     Route: 055
     Dates: start: 20060901
  2. PREDNISONE [Suspect]
     Route: 048
     Dates: end: 20060901
  3. PRILOSEC [Concomitant]
  4. NASACORT [Concomitant]
  5. ALBUTEROL [Concomitant]
  6. BENICAR [Concomitant]
  7. VITAMIN [Concomitant]
  8. POTASSIUM CHLORIDE [Concomitant]
  9. CALCIUM [Concomitant]

REACTIONS (5)
  - BURNING SENSATION [None]
  - LIP HAEMORRHAGE [None]
  - RASH [None]
  - SWOLLEN TONGUE [None]
  - URTICARIA [None]
